FAERS Safety Report 7352349-0 (Version None)
Quarter: 2011Q1

REPORT INFORMATION
  Report Type: 
  Country: None (occurrence: None)
  Receive Date: 20110309
  Receipt Date: 20110309
  Transmission Date: 20110831
  Serious: Yes (Other)
  Sender: FDA-Public Use
  Company Number: None

PATIENT
  Age: 46 Year
  Sex: Male
  Weight: 85.2762 kg

DRUGS (1)
  1. ALLEGRA [Suspect]
     Indication: SINUS DISORDER

REACTIONS (1)
  - DEPERSONALISATION [None]
